FAERS Safety Report 4825368-3 (Version None)
Quarter: 2005Q4

REPORT INFORMATION
  Report Type: 
  Country: None (occurrence: None)
  Receive Date: 20051111
  Receipt Date: 20041222
  Transmission Date: 20060501
  Serious: Yes (Life-Threatening)
  Sender: FDA-Public Use
  Company Number: JP-ROCHE-390279

PATIENT
  Age: 36 Year
  Sex: Male

DRUGS (12)
  1. CELLCEPT [Suspect]
     Route: 048
     Dates: start: 20041124, end: 20041204
  2. CELLCEPT [Suspect]
     Route: 048
     Dates: start: 20041216, end: 20041220
  3. PROGRAF [Concomitant]
     Route: 048
     Dates: start: 20041127, end: 20041129
  4. PROGRAF [Concomitant]
     Route: 042
     Dates: start: 20041130, end: 20041203
  5. NEORAL [Concomitant]
     Route: 048
     Dates: start: 20041209
  6. IMURAN [Concomitant]
     Route: 048
     Dates: start: 20041209, end: 20041216
  7. PREDONINE [Concomitant]
     Route: 048
     Dates: start: 20041124
  8. SIMULECT [Concomitant]
     Dosage: STOPPED ON THE 30 NOVEMBER 2004 AND RESTARTED ON 04 DECEMBER 2004.
     Route: 042
     Dates: start: 20041130, end: 20041204
  9. SOLU-MEDROL [Concomitant]
     Dosage: 125 MG ONCE A DAY STOPPED ON THE 04 DECEMBER 2004 AND 500 MG ONCE A DAY STARTED ON 14 DECEMBER 2004.
     Route: 042
     Dates: start: 20041130, end: 20041216
  10. PENTCILLIN [Concomitant]
     Dosage: STOPPED ON 03 DECEMBER 2004 AND RESTARTED ON 13 DECEMBER 2004.
     Route: 042
     Dates: start: 20041130, end: 20041220
  11. RITUXAN [Concomitant]
     Dosage: STOPPED ON THE 06 DECEMBER 2004 AND RESTARTED ON 14 DECEMBER 2004.
     Route: 042
     Dates: start: 20041206, end: 20041214
  12. MEDROL [Concomitant]
     Dosage: 32 MG TOTAL DAILY DOSE WAS CHANGED TO 24 MG ON 17 DECEMBER 2004 AND THIS WAS CHANGED TO 16 MG ON 24+
     Route: 048
     Dates: start: 20041207

REACTIONS (5)
  - BACK PAIN [None]
  - CHEST PAIN [None]
  - HAEMOLYTIC URAEMIC SYNDROME [None]
  - PLASMAPHERESIS [None]
  - THROMBOTIC THROMBOCYTOPENIC PURPURA [None]
